FAERS Safety Report 8451376-X (Version None)
Quarter: 2012Q2

REPORT INFORMATION
  Report Type: 
  Country: None (occurrence: None)
  Receive Date: 20120620
  Receipt Date: 20120309
  Transmission Date: 20120825
  Serious: No
  Sender: FDA-Public Use
  Company Number: US-VERTEX PHARMACEUTICALS INC.-AE-2012-002833

PATIENT
  Sex: Female
  Weight: 79.45 kg

DRUGS (5)
  1. PEGASYS [Concomitant]
     Dates: start: 20120310
  2. PEGASYS [Concomitant]
     Indication: HEPATITIS C
     Route: 058
     Dates: start: 20111202, end: 20120227
  3. INCIVEK [Suspect]
     Indication: HEPATITIS C
     Route: 048
     Dates: start: 20111202, end: 20120224
  4. RIBAVIRIN [Concomitant]
     Indication: HEPATITIS C
     Route: 048
     Dates: start: 20111202, end: 20120227
  5. RIBAVIRIN [Concomitant]
     Dates: start: 20120301

REACTIONS (4)
  - WHITE BLOOD CELL COUNT DECREASED [None]
  - RASH ERYTHEMATOUS [None]
  - PRURITUS [None]
  - URTICARIA [None]
